FAERS Safety Report 10050467 (Version 1)
Quarter: 2014Q1

REPORT INFORMATION
  Report Type: Spontaneous
  Country: US (occurrence: None)
  Receive Date: 20140328
  Receipt Date: 20140328
  Transmission Date: 20141002
  Serious: Yes (Death)
  Sender: FDA-Public Use
  Company Number: AUR-APL-2014-03730

PATIENT
  Age: 54 Year
  Sex: Male

DRUGS (4)
  1. OXYCODONE (OXYCODONE) [Suspect]
     Indication: PRODUCT USED FOR UNKNOWN INDICATION
  2. HEROIN (DIAMORPHINE) (DIAMORPHINE) [Suspect]
     Indication: PRODUCT USED FOR UNKNOWN INDICATION
  3. QUININE [Suspect]
     Indication: PRODUCT USED FOR UNKNOWN INDICATION
  4. LEVAMISOLE [Suspect]

REACTIONS (2)
  - Toxicity to various agents [None]
  - Exposure via ingestion [None]
